FAERS Safety Report 17231086 (Version 9)
Quarter: 2021Q4

REPORT INFORMATION
  Report Type: Spontaneous
  Country: US (occurrence: US)
  Receive Date: 20200103
  Receipt Date: 20211217
  Transmission Date: 20220304
  Serious: No
  Sender: FDA-Public Use
  Company Number: US-PFIZER INC-2019285009

PATIENT
  Age: 62 Year
  Sex: Female

DRUGS (2)
  1. LYRICA [Suspect]
     Active Substance: PREGABALIN
     Indication: Neuralgia
     Dosage: 200 MG, 3X/DAY
     Route: 048
  2. LYRICA [Suspect]
     Active Substance: PREGABALIN
     Indication: Neuritis

REACTIONS (6)
  - Nasopharyngitis [Unknown]
  - Memory impairment [Unknown]
  - Speech disorder [Unknown]
  - Violence-related symptom [Unknown]
  - Diarrhoea [Unknown]
  - Hypoacusis [Unknown]
